FAERS Safety Report 20417366 (Version 3)
Quarter: 2022Q3

REPORT INFORMATION
  Report Type: Spontaneous
  Country: JP (occurrence: JP)
  Receive Date: 20220202
  Receipt Date: 20220715
  Transmission Date: 20221027
  Serious: No
  Sender: FDA-Public Use
  Company Number: JP-GLAXOSMITHKLINE-JP2022JPN015542

PATIENT

DRUGS (10)
  1. SOTROVIMAB [Suspect]
     Active Substance: SOTROVIMAB
     Indication: COVID-19
     Dosage: 500 MG/DAY
     Route: 041
     Dates: start: 20220125, end: 20220125
  2. LEVOTHYROXINE SODIUM [Suspect]
     Active Substance: LEVOTHYROXINE SODIUM
     Indication: Hypothyroidism
     Dosage: 175 MG/DAY
     Route: 048
     Dates: start: 20210730, end: 20210915
  3. LEVOTHYROXINE SODIUM [Suspect]
     Active Substance: LEVOTHYROXINE SODIUM
     Dosage: 200 MG
     Route: 048
     Dates: start: 20210916, end: 20211013
  4. LEVOTHYROXINE SODIUM [Suspect]
     Active Substance: LEVOTHYROXINE SODIUM
     Dosage: 250 MG
     Route: 048
     Dates: start: 20211014, end: 20211110
  5. LEVOTHYROXINE SODIUM [Suspect]
     Active Substance: LEVOTHYROXINE SODIUM
     Dosage: 300 MG
     Route: 048
     Dates: start: 20211111, end: 20220204
  6. ALFAROL [Suspect]
     Active Substance: ALFACALCIDOL
     Indication: Hypothyroidism
     Dosage: 1 MG/DAY
     Route: 048
     Dates: start: 20210730
  7. MAGNESIUM OXIDE [Suspect]
     Active Substance: MAGNESIUM OXIDE
     Indication: Constipation
     Dosage: 1500 MG/DAY
     Route: 048
     Dates: start: 20210915, end: 20210928
  8. DIFLUCORTOLONE VALERATE\LIDOCAINE [Suspect]
     Active Substance: DIFLUCORTOLONE VALERATE\LIDOCAINE
     Indication: Haemorrhoids
     Dosage: 4 G/DAY
     Dates: start: 20210915, end: 20210928
  9. CALONAL [Suspect]
     Active Substance: ACETAMINOPHEN
     Indication: Antipyresis
     Dosage: 1200 MG/DAY
     Route: 048
     Dates: start: 20211001, end: 20211007
  10. CALONAL [Suspect]
     Active Substance: ACETAMINOPHEN
     Indication: Analgesic therapy
     Dosage: 400 MG/DOSE AS NEEDED, 400 MG/DAY ON 30 JANUARY, 800 MG/DAY ON 31 JANUARY
     Route: 048
     Dates: start: 20220130, end: 20220131

REACTIONS (2)
  - Exposure during pregnancy [Unknown]
  - Live birth [Unknown]
